FAERS Safety Report 6355778-7 (Version None)
Quarter: 2009Q3

REPORT INFORMATION
  Report Type: 
  Country: None (occurrence: None)
  Receive Date: 20090911
  Receipt Date: 20090911
  Transmission Date: 20100115
  Serious: Yes (Other)
  Sender: FDA-Public Use
  Company Number: None

PATIENT
  Sex: Male
  Weight: 76.2043 kg

DRUGS (1)
  1. VALPROIC ACID [Suspect]
     Indication: CONVULSION
     Dosage: (DATES OF USE: UNSURE PRIOR TO 2006)

REACTIONS (3)
  - CONVULSION [None]
  - FALL [None]
  - PRODUCT SUBSTITUTION ISSUE [None]
